FAERS Safety Report 8524666-X (Version None)
Quarter: 2012Q3

REPORT INFORMATION
  Report Type: 
  Country: None (occurrence: None)
  Receive Date: 20120720
  Receipt Date: 20120706
  Transmission Date: 20120928
  Serious: Yes (Death, Life-Threatening)
  Sender: FDA-Public Use
  Company Number: JP-ROCHE-1060153

PATIENT
  Sex: Female
  Weight: 52 kg

DRUGS (7)
  1. ALOXI [Suspect]
     Indication: PROPHYLAXIS
     Route: 041
     Dates: start: 20120312, end: 20120326
  2. IRINOTECAN HCL [Concomitant]
     Indication: COLON CANCER METASTATIC
     Route: 041
     Dates: start: 20120227, end: 20120326
  3. DECADRON [Concomitant]
     Indication: PROPHYLAXIS
     Route: 041
     Dates: start: 20120312, end: 20120326
  4. FLUOROURACIL [Concomitant]
     Route: 041
     Dates: start: 20120227, end: 20120301
  5. LEVOLEUCOVORIN CALCIUM [Suspect]
     Indication: COLON CANCER METASTATIC
     Route: 041
     Dates: start: 20120227, end: 20120326
  6. FLUOROURACIL [Concomitant]
     Indication: COLON CANCER METASTATIC
     Route: 040
     Dates: start: 20120227, end: 20120326
  7. AVASTIN [Suspect]
     Indication: COLON CANCER METASTATIC
     Route: 041
     Dates: start: 20120312, end: 20120326

REACTIONS (5)
  - LARGE INTESTINE PERFORATION [None]
  - ABDOMINAL ABSCESS [None]
  - ILEAL PERFORATION [None]
  - DISEASE PROGRESSION [None]
  - LARGE INTESTINAL ULCER HAEMORRHAGE [None]
